FAERS Safety Report 23579327 (Version 1)
Quarter: 2024Q1

REPORT INFORMATION
  Report Type: Spontaneous
  Country: ES (occurrence: ES)
  Receive Date: 20240229
  Receipt Date: 20240229
  Transmission Date: 20240410
  Serious: Yes (Other)
  Sender: FDA-Public Use
  Company Number: ES-AMGEN-ESPSP2024037933

PATIENT

DRUGS (2)
  1. ADALIMUMAB [Suspect]
     Active Substance: ADALIMUMAB\ISOPROPYL ALCOHOL
     Indication: Crohn^s disease
     Dosage: UNK
     Route: 065
  2. ADALIMUMAB [Suspect]
     Active Substance: ADALIMUMAB\ISOPROPYL ALCOHOL
     Indication: Colitis ulcerative

REACTIONS (18)
  - Colitis ulcerative [Unknown]
  - Lupus-like syndrome [Unknown]
  - Crohn^s disease [Unknown]
  - Pyoderma gangrenosum [Unknown]
  - Panniculitis [Unknown]
  - Dermatitis psoriasiform [Unknown]
  - Hidradenitis [Unknown]
  - Seborrhoeic dermatitis [Unknown]
  - Dermatitis atopic [Unknown]
  - Acne [Unknown]
  - Folliculitis [Unknown]
  - Vitiligo [Unknown]
  - Melanocytic naevus [Unknown]
  - Rosacea [Unknown]
  - Lichen planus [Unknown]
  - Eczema [Unknown]
  - Vasculitis [Unknown]
  - Psoriasis [Unknown]
